FAERS Safety Report 5613053-X (Version None)
Quarter: 2008Q1

REPORT INFORMATION
  Report Type: 
  Country: None (occurrence: None)
  Receive Date: 20080204
  Receipt Date: 20080125
  Transmission Date: 20080703
  Serious: Yes (Life-Threatening)
  Sender: FDA-Public Use
  Company Number: FR-ABBOTT-08P-056-0433673-00

PATIENT
  Sex: Female

DRUGS (6)
  1. HUMIRA [Suspect]
     Indication: SPONDYLOARTHROPATHY
     Dates: start: 20070301
  2. HUMIRA [Suspect]
     Indication: PSORIASIS
  3. HYDROMORPHONE HCL [Suspect]
     Indication: PAIN
     Route: 048
  4. MORPHINE SULFATE [Suspect]
     Indication: PAIN
     Route: 048
  5. ALPRAZOLAM [Suspect]
     Indication: ANXIETY
     Route: 048
  6. AUGMENTIN '250' [Suspect]
     Indication: LUNG DISORDER
     Dates: start: 20071010

REACTIONS (8)
  - COMA [None]
  - DEHYDRATION [None]
  - DIARRHOEA [None]
  - LUNG DISORDER [None]
  - NUTRITIONAL CONDITION ABNORMAL [None]
  - OVERDOSE [None]
  - RENAL FAILURE ACUTE [None]
  - VOMITING [None]
